FAERS Safety Report 5179479-6 (Version None)
Quarter: 2006Q4

REPORT INFORMATION
  Report Type: 
  Country: None (occurrence: None)
  Receive Date: 20061211
  Receipt Date: 20061127
  Transmission Date: 20070319
  Serious: Yes (Other)
  Sender: FDA-Public Use
  Company Number: HQWYE510527NOV06

PATIENT
  Age: 41 Year
  Sex: Female

DRUGS (2)
  1. INDERAL [Suspect]
     Indication: ANXIETY
     Dosage: ORAL
     Route: 048
     Dates: start: 20061019, end: 20061019
  2. ST. JOHN'S WORT (HYPERICUM PERFORATUM) [Concomitant]

REACTIONS (2)
  - DEAFNESS [None]
  - SINUS CONGESTION [None]
